FAERS Safety Report 6039687-9 (Version None)
Quarter: 2009Q1

REPORT INFORMATION
  Report Type: 
  Country: None (occurrence: None)
  Receive Date: 20090116
  Receipt Date: 20080317
  Transmission Date: 20090719
  Serious: No
  Sender: FDA-Public Use
  Company Number: US-KINGPHARMUSA00001-K200800334

PATIENT
  Sex: Female
  Weight: 60.317 kg

DRUGS (2)
  1. CORGARD [Suspect]
     Indication: HYPERTENSION
     Dosage: 80 MG, QD IN MORNING WITH COFFEE AND ORANGE JUICE
     Dates: start: 19830101
  2. CHLORTHALIDONE [Concomitant]
     Indication: DIURETIC THERAPY
     Dosage: 25 MG, UNK

REACTIONS (1)
  - ABDOMINAL DISCOMFORT [None]
